FAERS Safety Report 20883382 (Version 1)
Quarter: 2022Q2

REPORT INFORMATION
  Report Type: Spontaneous
  Country: US (occurrence: US)
  Receive Date: 20220527
  Receipt Date: 20220527
  Transmission Date: 20220721
  Serious: Yes (Other)
  Sender: FDA-Public Use
  Company Number: US-BAYER-2022A075097

PATIENT
  Age: 83 Year
  Sex: Female

DRUGS (2)
  1. ALKA-SELTZER PLUS DAY AND NIGHT MULTI-SYMPTOM COLD AND FLU FORMULA [Suspect]
     Active Substance: ACETAMINOPHEN\DEXTROMETHORPHAN HYDROBROMIDE\DOXYLAMINE SUCCINATE\PHENYLEPHRINE
     Indication: Hypersensitivity
     Dosage: UNK, I TOOK 1 GEL EVERY 4 HRS AT DAY AND NIGHT
     Route: 048
     Dates: start: 20220524, end: 20220525
  2. ALKA-SELTZER PLUS DAY AND NIGHT MULTI-SYMPTOM COLD AND FLU FORMULA [Suspect]
     Active Substance: ACETAMINOPHEN\DEXTROMETHORPHAN HYDROBROMIDE\DOXYLAMINE SUCCINATE\PHENYLEPHRINE
     Indication: Nasopharyngitis

REACTIONS (1)
  - Foreign body in throat [Recovering/Resolving]

NARRATIVE: CASE EVENT DATE: 20220525
